FAERS Safety Report 21363478 (Version 2)
Quarter: 2022Q4

REPORT INFORMATION
  Report Type: Spontaneous
  Country: US (occurrence: US)
  Receive Date: 20220922
  Receipt Date: 20221005
  Transmission Date: 20230113
  Serious: Yes (Death, Life-Threatening, Hospitalization, Other)
  Sender: FDA-Public Use
  Company Number: US-BAXTER-2022BAX019909

PATIENT
  Age: 65 Year
  Sex: Female

DRUGS (13)
  1. METRONIDAZOLE [Suspect]
     Active Substance: METRONIDAZOLE
     Indication: Clostridium difficile colitis
     Dosage: UNK
     Route: 042
  2. ETHAMBUTOL [Suspect]
     Active Substance: ETHAMBUTOL HYDROCHLORIDE
     Indication: Disseminated tuberculosis
     Dosage: RIPE
     Route: 065
  3. PYRAZINAMIDE [Suspect]
     Active Substance: PYRAZINAMIDE
     Indication: Disseminated tuberculosis
     Dosage: RIPE
     Route: 065
  4. RIFAMPIN [Suspect]
     Active Substance: RIFAMPIN
     Indication: Disseminated tuberculosis
     Dosage: RIPE
     Route: 065
  5. ISONIAZID [Suspect]
     Active Substance: ISONIAZID
     Indication: Disseminated tuberculosis
     Dosage: RIPE
     Route: 065
  6. BASILIXIMAB [Concomitant]
     Active Substance: BASILIXIMAB
     Indication: Immunosuppressant drug therapy
     Dosage: ON DAY 0 AND DAY 4
     Route: 065
  7. TACROLIMUS [Concomitant]
     Active Substance: TACROLIMUS
     Indication: Immunosuppressant drug therapy
     Dosage: UNK
     Route: 065
  8. MYCOPHENOLIC ACID [Concomitant]
     Active Substance: MYCOPHENOLIC ACID
     Indication: Immunosuppressant drug therapy
     Dosage: UNK
     Route: 065
  9. PREDNISONE [Concomitant]
     Active Substance: PREDNISONE
     Indication: Immunosuppressant drug therapy
     Dosage: UNK
     Route: 065
  10. OXYGEN [Concomitant]
     Active Substance: OXYGEN
     Indication: Dyspnoea
     Dosage: 2 L; HOME OXYGEN
     Route: 045
  11. OXYGEN [Concomitant]
     Active Substance: OXYGEN
     Dosage: HOME OXYGEN
     Route: 065
  12. LINEZOLID [Concomitant]
     Active Substance: LINEZOLID
     Indication: Mastitis bacterial
     Dosage: UNK
     Route: 065
  13. VANCOMYCIN [Concomitant]
     Active Substance: VANCOMYCIN
     Indication: Clostridium difficile colitis
     Route: 048

REACTIONS (7)
  - Pancreatitis acute [Fatal]
  - Multiple organ dysfunction syndrome [Fatal]
  - Pancreatitis haemorrhagic [Fatal]
  - Oedematous kidney [Fatal]
  - Oedematous pancreatitis [Fatal]
  - Distributive shock [Fatal]
  - Disseminated intravascular coagulation [Fatal]
